FAERS Safety Report 19021815 (Version 1)
Quarter: 2021Q1

REPORT INFORMATION
  Report Type: Other
  Country: US (occurrence: US)
  Receive Date: 20210317
  Receipt Date: 20210317
  Transmission Date: 20210420
  Serious: Yes (Hospitalization)
  Sender: FDA-Public Use
  Company Number: US-ROCHE-2787033

PATIENT
  Age: 44 Year
  Sex: Male
  Weight: 63.56 kg

DRUGS (2)
  1. OCREVUS [Suspect]
     Active Substance: OCRELIZUMAB
     Dosage: DATES OF INFUSION: 17/DEC/2018, 31/DEC/2018, 01/JUL/2019, 13/JAN/2020, 13/JUL/2020, 15/JAN/2021
     Route: 042
     Dates: start: 20200713
  2. OCREVUS [Suspect]
     Active Substance: OCRELIZUMAB
     Indication: MULTIPLE SCLEROSIS
     Dosage: PRESCRIBED DOSE: INFUSE 300MG DAY 1 AND THEN 300MG DAY 15
     Route: 042
     Dates: start: 201801

REACTIONS (8)
  - Fall [Unknown]
  - Urinary incontinence [Not Recovered/Not Resolved]
  - Gait disturbance [Not Recovered/Not Resolved]
  - COVID-19 [Recovered/Resolved]
  - Feeling hot [Not Recovered/Not Resolved]
  - Hip fracture [Recovered/Resolved]
  - Weight decreased [Unknown]
  - Tremor [Not Recovered/Not Resolved]

NARRATIVE: CASE EVENT DATE: 202004
